FAERS Safety Report 8885661 (Version 1)
Quarter: 2012Q4

REPORT INFORMATION
  Report Type: 
  Country: US (occurrence: US)
  Receive Date: 20121102
  Receipt Date: 20121102
  Transmission Date: 20130627
  Serious: No
  Sender: FDA-Public Use
  Company Number: US-009507513-1210USA013648

PATIENT
  Age: 82 Year
  Sex: Male

DRUGS (3)
  1. ASMANEX TWISTHALER [Suspect]
     Indication: BRONCHIAL DISORDER
     Dosage: UNK
     Route: 055
     Dates: start: 201208, end: 20121021
  2. ASMANEX TWISTHALER [Suspect]
     Indication: INCREASED UPPER AIRWAY SECRETION
  3. THYROID [Concomitant]
     Dosage: 50 mg, UNK

REACTIONS (3)
  - Eructation [Not Recovered/Not Resolved]
  - Oral pain [Not Recovered/Not Resolved]
  - Asthenia [Not Recovered/Not Resolved]
